FAERS Safety Report 23266996 (Version 1)
Quarter: 2023Q4

REPORT INFORMATION
  Report Type: Other
  Country: None (occurrence: CN)
  Receive Date: 20231206
  Receipt Date: 20231206
  Transmission Date: 20240110
  Serious: Yes (Hospitalization, Other)
  Sender: FDA-Public Use
  Company Number: CN-Caplin Steriles Limited-2149040

PATIENT
  Age: 19 Day

DRUGS (1)
  1. TRANEXAMIC ACID [Suspect]
     Active Substance: TRANEXAMIC ACID
     Indication: Haemorrhage
     Route: 065

REACTIONS (2)
  - Hypercoagulation [Unknown]
  - C-reactive protein increased [Unknown]
